FAERS Safety Report 6896350-X (Version None)
Quarter: 2010Q3

REPORT INFORMATION
  Report Type: 
  Country: None (occurrence: None)
  Receive Date: 20100728
  Receipt Date: 20100722
  Transmission Date: 20110219
  Serious: Yes (Hospitalization, Other)
  Sender: FDA-Public Use
  Company Number: 20109044

PATIENT
  Sex: Male

DRUGS (1)
  1. LIORESAL [Suspect]
     Indication: MUSCLE SPASTICITY
     Dosage: DAILY, INTRATHECAL
     Route: 037

REACTIONS (7)
  - CLONUS [None]
  - DEVICE BREAKAGE [None]
  - IRRITABILITY [None]
  - MUSCLE SPASMS [None]
  - MUSCLE SPASTICITY [None]
  - PRURITUS [None]
  - RASH [None]
